FAERS Safety Report 5945760-3 (Version None)
Quarter: 2008Q4

REPORT INFORMATION
  Report Type: 
  Country: None (occurrence: None)
  Receive Date: 20081106
  Receipt Date: 20081028
  Transmission Date: 20090506
  Serious: Yes (Hospitalization, Other)
  Sender: FDA-Public Use
  Company Number: 2008SP009791

PATIENT
  Age: 66 Year
  Sex: Female
  Weight: 86.3 kg

DRUGS (5)
  1. TEMODAR [Suspect]
     Indication: GLIOBLASTOMA MULTIFORME
     Dosage: 145 MG;QD;PO, 75 MG/M2;QD;PO, 145 MG;QD;PO
     Route: 048
     Dates: start: 20080501, end: 20080521
  2. TEMODAR [Suspect]
     Indication: GLIOBLASTOMA MULTIFORME
     Dosage: 145 MG;QD;PO, 75 MG/M2;QD;PO, 145 MG;QD;PO
     Route: 048
     Dates: start: 20080508, end: 20080605
  3. TEMODAR [Suspect]
     Indication: GLIOBLASTOMA MULTIFORME
     Dosage: 145 MG;QD;PO, 75 MG/M2;QD;PO, 145 MG;QD;PO
     Route: 048
     Dates: start: 20070806
  4. TEMODAR [Suspect]
  5. TEMODAR [Suspect]

REACTIONS (4)
  - CONVULSION [None]
  - MYOPATHY [None]
  - NEUROPATHY PERIPHERAL [None]
  - PULMONARY EMBOLISM [None]
